FAERS Safety Report 9297819 (Version 2)
Quarter: 2013Q2

REPORT INFORMATION
  Report Type: Spontaneous
  Country: US (occurrence: US)
  Receive Date: 20130520
  Receipt Date: 20130607
  Transmission Date: 20140414
  Serious: Yes (Disabling)
  Sender: FDA-Public Use
  Company Number: US-PFIZER INC-2013154360

PATIENT
  Age: 58 Year
  Sex: Female
  Weight: 49.89 kg

DRUGS (7)
  1. EFFEXOR XR [Suspect]
     Indication: DEPRESSION
     Dosage: 150 MG, 1X/DAY
     Route: 048
     Dates: start: 1993
  2. EFFEXOR XR [Suspect]
     Indication: PANIC ATTACK
     Dosage: 300 MG, 1X/DAY
     Route: 048
  3. EFFEXOR XR [Suspect]
     Indication: ANXIETY
  4. BUPROPION XL [Concomitant]
     Indication: DEPRESSION
     Dosage: 150, UNK
     Dates: start: 20130502, end: 20130514
  5. BUPROPION XL [Concomitant]
     Dosage: 300 QD
     Dates: start: 20130515
  6. TRAZODONE [Concomitant]
     Indication: INSOMNIA
     Dosage: 50 HS
  7. CLONAZEPAM [Concomitant]
     Indication: ANXIETY
     Dosage: 1 MG, 1-2 UP TO TID

REACTIONS (4)
  - Musculoskeletal disorder [Unknown]
  - Impaired work ability [Unknown]
  - Neck pain [Unknown]
  - Muscle spasms [Unknown]
